FAERS Safety Report 7405343-5 (Version None)
Quarter: 2011Q2

REPORT INFORMATION
  Report Type: 
  Country: None (occurrence: None)
  Receive Date: 20110411
  Receipt Date: 20101021
  Transmission Date: 20111010
  Serious: Yes (Hospitalization, Other)
  Sender: FDA-Public Use
  Company Number: US-BAYER-200944093NA

PATIENT
  Age: 49 Year
  Sex: Female
  Weight: 69 kg

DRUGS (7)
  1. YASMIN [Suspect]
     Route: 048
     Dates: start: 20080201, end: 20080701
  2. YASMIN [Suspect]
     Indication: ORAL CONTRACEPTION
     Route: 048
     Dates: start: 20030101, end: 20040101
  3. YAZ [Suspect]
     Dosage: UNK
     Route: 048
  4. TRIAMTERENE AND HYDROCHLOROTHIAZIDE [Concomitant]
     Indication: HYPERTENSION
  5. OCELLA [Suspect]
     Dosage: 1 DF (DAILY DOSE), QD, ORAL
     Route: 048
     Dates: start: 20080701, end: 20080801
  6. CLARINEX [Concomitant]
     Indication: MULTIPLE ALLERGIES
     Dosage: UNK
  7. OCELLA [Suspect]
     Dosage: 1 DF (DAILY DOSE), QD, ORAL
     Route: 048
     Dates: start: 20080701, end: 20080801

REACTIONS (4)
  - PULMONARY EMBOLISM [None]
  - DEEP VEIN THROMBOSIS [None]
  - CARDIAC DISORDER [None]
  - PERICARDIAL EFFUSION [None]
